FAERS Safety Report 9356096 (Version 1)
Quarter: 2013Q2

REPORT INFORMATION
  Report Type: Spontaneous
  Country: GB (occurrence: None)
  Receive Date: 20130614
  Receipt Date: 20130614
  Transmission Date: 20140414
  Serious: Yes (Other)
  Sender: FDA-Public Use
  Company Number: AUR-APL-2013-04789

PATIENT
  Age: 31 Year
  Sex: Male

DRUGS (3)
  1. CITALOPRAM (CITALOPRAM) [Suspect]
     Indication: DEPRESSION
  2. EPILIM CHRONO [Suspect]
     Indication: EPILEPSY
     Dosage: 1600 MG, 2 IN 1 D
     Route: 048
     Dates: start: 2009
  3. FRISIUM [Suspect]
     Indication: ANXIETY
     Dosage: 5 MG IN THE MORNING AND 10 MG
     Dates: start: 2011

REACTIONS (3)
  - Convulsion [None]
  - Rash erythematous [None]
  - Convulsion [None]
